FAERS Safety Report 23410562 (Version 1)
Quarter: 2024Q1

REPORT INFORMATION
  Report Type: Spontaneous
  Country: PT (occurrence: PT)
  Receive Date: 20240117
  Receipt Date: 20240117
  Transmission Date: 20240410
  Serious: Yes (Hospitalization, Other)
  Sender: FDA-Public Use
  Company Number: PT-SANDOZ-SDZ2024PT004218

PATIENT
  Age: 57 Year
  Sex: Female

DRUGS (1)
  1. QUETIAPINE [Suspect]
     Active Substance: QUETIAPINE
     Indication: Product used for unknown indication
     Dosage: 3 G
     Route: 048

REACTIONS (4)
  - Suicide attempt [Unknown]
  - Ectopic atrial rhythm [Recovering/Resolving]
  - Overdose [Unknown]
  - Electrocardiogram QT prolonged [Recovering/Resolving]
